FAERS Safety Report 8015628-X (Version None)
Quarter: 2011Q4

REPORT INFORMATION
  Report Type: 
  Country: None (occurrence: None)
  Receive Date: 20111230
  Receipt Date: 20111221
  Transmission Date: 20120403
  Serious: Yes (Hospitalization)
  Sender: FDA-Public Use
  Company Number: CN-MPIJNJ-2011-06228

PATIENT

DRUGS (4)
  1. VELCADE [Suspect]
     Indication: MULTIPLE MYELOMA
     Dosage: 2 MG, UNK
     Route: 042
     Dates: start: 20110901
  2. MELPHALAN HYDROCHLORIDE [Concomitant]
  3. THALIDOMIDE [Concomitant]
  4. PREDNISONE TAB [Concomitant]

REACTIONS (3)
  - LYMPHADENOPATHY [None]
  - THROMBOCYTOPENIA [None]
  - HEPATIC NEOPLASM [None]
